FAERS Safety Report 5583580-2 (Version None)
Quarter: 2007Q4

REPORT INFORMATION
  Report Type: 
  Country: None (occurrence: None)
  Receive Date: 20071231
  Receipt Date: 20071217
  Transmission Date: 20080405
  Serious: Yes (Other)
  Sender: FDA-Public Use
  Company Number: CHPA2007US13758

PATIENT
  Age: 6 Year
  Sex: Female
  Weight: 31.7 kg

DRUGS (2)
  1. TRIAMINIC THIN STRIPS COLD + COUGH (NCH)(DEXTROMETHORPHAN HYDROBROMIDE [Suspect]
     Indication: COUGH
     Dosage: 1 DF, ONCE/SINGLE, ORAL
     Route: 048
     Dates: start: 20071215, end: 20071215
  2. TRIAMINIC THIN STRIPS-COUGH AND RUNNY NOSE (NCH)(DIPHENHYDRAMINE HYDRO [Suspect]
     Indication: COUGH
     Dosage: 12.5 MG, ONCE/SINGLE, ORAL
     Route: 048
     Dates: start: 20071215, end: 20071215

REACTIONS (2)
  - PRURITUS [None]
  - RASH ERYTHEMATOUS [None]
